FAERS Safety Report 15439653 (Version 1)
Quarter: 2018Q3

REPORT INFORMATION
  Report Type: Report from Study
  Country: FR (occurrence: FR)
  Receive Date: 20180928
  Receipt Date: 20180928
  Transmission Date: 20181010
  Serious: Yes (Other)
  Sender: FDA-Public Use
  Company Number: PHHY2018FR073413

PATIENT
  Sex: Male
  Weight: 87 kg

DRUGS (1)
  1. VOTRIENT [Suspect]
     Active Substance: PAZOPANIB HYDROCHLORIDE
     Indication: RENAL CANCER METASTATIC
     Dosage: 800 MG, QD
     Route: 048
     Dates: start: 20180709

REACTIONS (10)
  - Nausea [Recovered/Resolved]
  - Blood alkaline phosphatase increased [Unknown]
  - Aspartate aminotransferase increased [Unknown]
  - Dysgeusia [Not Recovered/Not Resolved]
  - Asthenia [Not Recovered/Not Resolved]
  - Blood lactate dehydrogenase increased [Unknown]
  - Alanine aminotransferase increased [Unknown]
  - Cell death [Recovering/Resolving]
  - Abdominal rigidity [Not Recovered/Not Resolved]
  - Blood pressure increased [Not Recovered/Not Resolved]

NARRATIVE: CASE EVENT DATE: 20180723
